APPROVED DRUG PRODUCT: METHOTREXATE SODIUM
Active Ingredient: METHOTREXATE SODIUM
Strength: EQ 100MG BASE/VIAL
Dosage Form/Route: INJECTABLE;INJECTION
Application: A088937 | Product #001
Applicant: ABRAXIS PHARMACEUTICAL PRODUCTS
Approved: Oct 11, 1985 | RLD: No | RS: No | Type: DISCN